FAERS Safety Report 4286834-5 (Version None)
Quarter: 2004Q1

REPORT INFORMATION
  Report Type: 
  Country: None (occurrence: None)
  Receive Date: 20040204
  Receipt Date: 20040126
  Transmission Date: 20041129
  Serious: Yes (Other)
  Sender: FDA-Public Use
  Company Number: BE-JNJFOC-20031203401

PATIENT
  Age: 29 Year
  Sex: Male

DRUGS (2)
  1. SPORANOX [Suspect]
     Indication: ONYCHOMYCOSIS
     Dosage: 1 WEEK - 3 WEEK
     Dates: start: 20010101, end: 20010101
  2. SPORANOX [Suspect]
     Indication: ONYCHOMYCOSIS
     Dosage: 1 WEEK - 3 WEEK
     Dates: start: 20020101, end: 20020101

REACTIONS (2)
  - INFERTILITY [None]
  - SPERMATOZOA PROGRESSIVE MOTILITY ABNORMAL [None]
